FAERS Safety Report 4536001-2 (Version None)
Quarter: 2004Q4

REPORT INFORMATION
  Report Type: 
  Country: None (occurrence: None)
  Receive Date: 20041216
  Receipt Date: 20040219
  Transmission Date: 20050328
  Serious: Yes (Disabling, Other)
  Sender: FDA-Public Use
  Company Number: HQWYE217120FEB04

PATIENT
  Age: 38 Year
  Sex: Male
  Weight: 104.42 kg

DRUGS (3)
  1. EFFEXOR XR [Suspect]
     Indication: DEPRESSION
     Dosage: 150 MG 1X PER 1 DAY, ORAL
     Route: 048
  2. DEPAKOTE [Concomitant]
  3. MARIJUANA (CANNABIS) [Concomitant]

REACTIONS (3)
  - FEELING COLD [None]
  - LOSS OF CONSCIOUSNESS [None]
  - NERVOUSNESS [None]
